FAERS Safety Report 15760522 (Version 1)
Quarter: 2018Q4

REPORT INFORMATION
  Report Type: Spontaneous
  Country: US (occurrence: US)
  Receive Date: 20181225
  Receipt Date: 20181225
  Transmission Date: 20190205
  Serious: No
  Sender: FDA-Public Use
  Company Number: None

PATIENT
  Age: 27 Year
  Sex: Female
  Weight: 45 kg

DRUGS (1)
  1. MAXIMUM STRENGTH LIDOCAINE PATCH [Suspect]
     Active Substance: LIDOCAINE
     Indication: MYALGIA
     Route: 062
     Dates: start: 20181224, end: 20181224

REACTIONS (5)
  - Chemical burn [None]
  - Application site pain [None]
  - Application site burn [None]
  - Rash [None]
  - Application site rash [None]

NARRATIVE: CASE EVENT DATE: 20181224
